FAERS Safety Report 11556950 (Version 1)
Quarter: 2015Q3

REPORT INFORMATION
  Report Type: Spontaneous
  Country: US (occurrence: US)
  Receive Date: 20150916
  Receipt Date: 20150916
  Transmission Date: 20151125
  Serious: No
  Sender: FDA-Public Use
  Company Number: US-ELI_LILLY_AND_COMPANY-US200806003953

PATIENT
  Age: 26 Year
  Sex: Female
  Weight: 70.75 kg

DRUGS (7)
  1. MAGNESIUM OXIDE. [Concomitant]
     Active Substance: MAGNESIUM OXIDE
     Indication: HYPOCALCAEMIA
     Dates: start: 200712
  2. SYNTHROID [Concomitant]
     Active Substance: LEVOTHYROXINE SODIUM
  3. PRENATAL VITAMINS /01549301/ [Concomitant]
     Active Substance: VITAMINS
  4. FORTEO [Suspect]
     Active Substance: TERIPARATIDE
     Indication: HYPOPARATHYROIDISM
     Dosage: 20 UG, UNK
     Dates: start: 20080313, end: 20080617
  5. FORTEO [Suspect]
     Active Substance: TERIPARATIDE
     Dates: start: 200902
  6. CALCITRIOL. [Concomitant]
     Active Substance: CALCITRIOL
     Indication: HYPOCALCAEMIA
     Dosage: 0.25 MG, 2/D
     Dates: start: 200712
  7. CALCIUM CARBONATE. [Concomitant]
     Active Substance: CALCIUM CARBONATE
     Indication: HYPOCALCAEMIA
     Dates: start: 200712

REACTIONS (1)
  - Exposure during pregnancy [Recovered/Resolved]

NARRATIVE: CASE EVENT DATE: 200805
